FAERS Safety Report 6610213-6 (Version None)
Quarter: 2010Q1

REPORT INFORMATION
  Report Type: 
  Country: None (occurrence: None)
  Receive Date: 20100216
  Receipt Date: 20090706
  Transmission Date: 20100710
  Serious: Yes (Hospitalization, Other)
  Sender: FDA-Public Use
  Company Number: MC200900216

PATIENT
  Age: 69 Year
  Sex: Female

DRUGS (9)
  1. ANGIOMAX [Suspect]
     Indication: PERCUTANEOUS CORONARY INTERVENTION
     Dosage: INTRAVENOUS
     Route: 042
     Dates: start: 20090617, end: 20090617
  2. PLAVIX [Suspect]
     Dosage: ORAL
     Route: 048
  3. LIPITOR [Concomitant]
  4. INSULIN (INSULIN) [Concomitant]
  5. NEXIUM [Concomitant]
  6. METOPROLOL (METOPROLOL) [Concomitant]
  7. PRINIVIL [Concomitant]
  8. ALBUTEROL [Concomitant]
  9. SORBITOL (SORBITOL) [Concomitant]

REACTIONS (2)
  - BLOOD PRESSURE DECREASED [None]
  - RETROPERITONEAL HAEMORRHAGE [None]
